FAERS Safety Report 12887314 (Version 1)
Quarter: 2016Q4

REPORT INFORMATION
  Report Type: Spontaneous
  Country: DE (occurrence: DE)
  Receive Date: 20161026
  Receipt Date: 20161026
  Transmission Date: 20170207
  Serious: No
  Sender: FDA-Public Use
  Company Number: DE-JAZZ-2016-DE-019088

PATIENT

DRUGS (1)
  1. DEFITELIO [Suspect]
     Active Substance: DEFIBROTIDE SODIUM
     Indication: THROMBOTIC THROMBOCYTOPENIC PURPURA
     Dosage: UNK

REACTIONS (1)
  - Off label use [Unknown]
